FAERS Safety Report 5367284-7 (Version None)
Quarter: 2007Q2

REPORT INFORMATION
  Report Type: 
  Country: None (occurrence: None)
  Receive Date: 20070622
  Receipt Date: 20070615
  Transmission Date: 20071010
  Serious: Yes (Other)
  Sender: FDA-Public Use
  Company Number: B0476279A

PATIENT

DRUGS (2)
  1. NIQUITIN CQ 21MG [Suspect]
     Route: 062
  2. LITHIUM CARBONATE [Suspect]
     Indication: BIPOLAR DISORDER
     Route: 065

REACTIONS (2)
  - ENCEPHALOPATHY [None]
  - MYOCLONUS [None]
